FAERS Safety Report 6391431-1 (Version None)
Quarter: 2009Q4

REPORT INFORMATION
  Report Type: 
  Country: None (occurrence: None)
  Receive Date: 20091007
  Receipt Date: 20090929
  Transmission Date: 20100525
  Serious: Yes (Other)
  Sender: FDA-Public Use
  Company Number: ES-JNJFOC-20091000074

PATIENT
  Sex: Female
  Weight: 71 kg

DRUGS (1)
  1. ORTHO EVRA [Suspect]
     Indication: CONTRACEPTION
     Route: 062
     Dates: start: 20090918, end: 20090928

REACTIONS (6)
  - ABDOMINAL PAIN [None]
  - ANXIETY [None]
  - CHEST DISCOMFORT [None]
  - CONJUNCTIVAL HAEMORRHAGE [None]
  - FATIGUE [None]
  - VULVOVAGINAL PRURITUS [None]
